FAERS Safety Report 4930123-X (Version None)
Quarter: 2006Q1

REPORT INFORMATION
  Report Type: 
  Country: None (occurrence: None)
  Receive Date: 20060302
  Receipt Date: 20060222
  Transmission Date: 20060701
  Serious: Yes (Hospitalization)
  Sender: FDA-Public Use
  Company Number: FR-BOEHRINGER INGELHEIM PHARMACEUTICALS, INC.-2006-FF-00137FF

PATIENT
  Age: 77 Year
  Sex: Female

DRUGS (13)
  1. SIFROL [Suspect]
     Indication: PARKINSON'S DISEASE
     Route: 048
     Dates: start: 20060120
  2. SIFROL [Suspect]
     Dosage: ONE TABLET THREE TIME DAILY
     Route: 048
  3. SINEMET [Concomitant]
     Indication: PARKINSON'S DISEASE
  4. MODOPAR [Concomitant]
     Indication: PARKINSON'S DISEASE
  5. LOXEN [Concomitant]
  6. HYPERIUM [Concomitant]
  7. COZAAR [Concomitant]
  8. OMEPRAZOLE [Concomitant]
  9. NEURONTIN [Concomitant]
  10. LASILIX [Concomitant]
  11. IMUREL [Concomitant]
  12. RENAGEL [Concomitant]
  13. CORTANCYL [Concomitant]

REACTIONS (2)
  - FACE OEDEMA [None]
  - OEDEMA PERIPHERAL [None]
